FAERS Safety Report 8952934 (Version 1)
Quarter: 2012Q4

REPORT INFORMATION
  Report Type: 
  Country: DE (occurrence: DE)
  Receive Date: 20121203
  Receipt Date: 20121203
  Transmission Date: 20130627
  Serious: Yes (Life-Threatening, Hospitalization, Other)
  Sender: FDA-Public Use
  Company Number: DE-ELI_LILLY_AND_COMPANY-DE201211008890

PATIENT
  Age: 51 Year
  Sex: Female
  Weight: 79 kg

DRUGS (4)
  1. EFIENT [Suspect]
     Indication: ACUTE MYOCARDIAL INFARCTION
     Dosage: 60 mg, single
     Route: 048
     Dates: start: 20111119, end: 20111119
  2. EFIENT [Suspect]
     Dosage: 10 mg, qd
     Route: 048
     Dates: start: 20111120
  3. ASPIRIN [Concomitant]
     Indication: ACUTE MYOCARDIAL INFARCTION
     Dosage: 300-500mg loading dose
  4. ASPIRIN [Concomitant]
     Dosage: 100 mg, qd

REACTIONS (1)
  - Ventricular fibrillation [Recovered/Resolved]
